FAERS Safety Report 6832601-5 (Version None)
Quarter: 2010Q3

REPORT INFORMATION
  Report Type: 
  Country: None (occurrence: None)
  Receive Date: 20100712
  Receipt Date: 20070315
  Transmission Date: 20110219
  Serious: No
  Sender: FDA-Public Use
  Company Number: US-PFIZER INC-2007020456

PATIENT
  Sex: Male
  Weight: 88.45 kg

DRUGS (12)
  1. CHANTIX [Suspect]
     Indication: SMOKING CESSATION THERAPY
     Dates: start: 20070201
  2. RANITIDINE [Concomitant]
     Indication: DYSPEPSIA
  3. COMBIVENT [Concomitant]
     Route: 055
  4. ADVAIR DISKUS 100/50 [Concomitant]
  5. PREVACID [Concomitant]
  6. HYDROCHLOROTHIAZIDE [Concomitant]
     Indication: BLOOD PRESSURE
  7. VITAMIN B COMPLEX CAP [Concomitant]
  8. VITAMIN C [Concomitant]
  9. NAPROXEN [Concomitant]
  10. CITALOPRAM HYDROBROMIDE [Concomitant]
     Indication: BLOOD PRESSURE
  11. AMBIEN [Concomitant]
  12. LYRICA [Concomitant]
     Indication: NERVE INJURY

REACTIONS (3)
  - DRUG INEFFECTIVE [None]
  - FRUSTRATION [None]
  - ILL-DEFINED DISORDER [None]
